FAERS Safety Report 12689624 (Version 1)
Quarter: 2016Q3

REPORT INFORMATION
  Report Type: Spontaneous
  Country: US (occurrence: None)
  Receive Date: 20160825
  Receipt Date: 20160825
  Transmission Date: 20161109
  Serious: Yes (Other)
  Sender: FDA-Public Use
  Company Number: None

PATIENT
  Age: 62 Year
  Sex: Female
  Weight: 72.58 kg

DRUGS (8)
  1. ZONISAMIDE GLENMARK PHARMACEUTICAL [Suspect]
     Active Substance: ZONISAMIDE
     Indication: FIBROMYALGIA
     Dosage: 60 TABLETS
     Route: 048
     Dates: start: 20160718, end: 20160811
  2. PRAVASTATIN. [Concomitant]
     Active Substance: PRAVASTATIN
  3. VITAMIN B12 [Concomitant]
     Active Substance: CYANOCOBALAMIN
  4. ESTER C [Concomitant]
  5. TRAZODONE [Concomitant]
     Active Substance: TRAZODONE HYDROCHLORIDE
  6. PROZAC [Concomitant]
     Active Substance: FLUOXETINE HYDROCHLORIDE
  7. LISINOPRIL. [Concomitant]
     Active Substance: LISINOPRIL
  8. MAGNESIUM [Concomitant]
     Active Substance: MAGNESIUM

REACTIONS (3)
  - Pharyngeal haemorrhage [None]
  - Eye irritation [None]
  - Ear pain [None]
